FAERS Safety Report 19190398 (Version 2)
Quarter: 2021Q3

REPORT INFORMATION
  Report Type: Spontaneous
  Country: JP (occurrence: JP)
  Receive Date: 20210428
  Receipt Date: 20210913
  Transmission Date: 20211014
  Serious: Yes (Death)
  Sender: FDA-Public Use
  Company Number: JP-JNJFOC-20210452049

PATIENT
  Age: 3 Year
  Weight: 4.9 kg

DRUGS (16)
  1. ENALAPRIL [Concomitant]
     Active Substance: ENALAPRIL
  2. L?CARBOCISTEINE [Concomitant]
     Active Substance: CARBOCYSTEINE
  3. VOLIBRIS [Concomitant]
     Active Substance: AMBRISENTAN
     Indication: PULMONARY ARTERIAL HYPERTENSION
  4. ALDACTONE?A [Concomitant]
     Active Substance: SPIRONOLACTONE
  5. URSO [Concomitant]
     Active Substance: URSODIOL
     Indication: PROPHYLAXIS
  6. REVATIO [Concomitant]
     Active Substance: SILDENAFIL CITRATE
     Indication: PULMONARY ARTERIAL HYPERTENSION
  7. PHENOBAL [PHENOBARBITAL] [Concomitant]
     Active Substance: PHENOBARBITAL
     Indication: TRISOMY 21
  8. FAMOTIDINE. [Concomitant]
     Active Substance: FAMOTIDINE
     Indication: PROPHYLAXIS
  9. POTASSIUM GLUCONATE [Concomitant]
     Active Substance: POTASSIUM GLUCONATE
     Indication: ELECTROLYTE IMBALANCE
     Dates: start: 20190723
  10. FUROSEMIDE. [Concomitant]
     Active Substance: FUROSEMIDE
  11. UPTRAVI [Suspect]
     Active Substance: SELEXIPAG
     Indication: PULMONARY ARTERIAL HYPERTENSION
     Route: 048
     Dates: start: 20190719
  12. YOKUKANSAN [Concomitant]
     Active Substance: HERBALS
     Indication: PROPHYLAXIS
  13. MIYA?BM [Concomitant]
     Active Substance: CLOSTRIDIUM BUTYRICUM SPORES STRAIN M-55
     Indication: PROPHYLAXIS
  14. TIZANIDINE. [Concomitant]
     Active Substance: TIZANIDINE
     Indication: TRISOMY 21
  15. CLARITHROMYCIN. [Concomitant]
     Active Substance: CLARITHROMYCIN
     Indication: PROPHYLAXIS
  16. MUCOSOLVAN [Concomitant]
     Active Substance: AMBROXOL HYDROCHLORIDE

REACTIONS (1)
  - Right-to-left cardiac shunt [Fatal]
